FAERS Safety Report 6823518-0 (Version None)
Quarter: 2010Q3

REPORT INFORMATION
  Report Type: 
  Country: None (occurrence: None)
  Receive Date: 20100708
  Receipt Date: 20100628
  Transmission Date: 20110219
  Serious: Yes (Other)
  Sender: FDA-Public Use
  Company Number: KR-PFIZER INC-2010079908

PATIENT
  Sex: Male

DRUGS (3)
  1. XALATAN [Suspect]
     Indication: GLAUCOMA
     Dosage: UNK
     Route: 047
  2. HYALURONATE SODIUM [Concomitant]
     Indication: LACRIMAL DISORDER
     Dosage: UNK
     Route: 047
  3. GINKGO BILOBA LEAF EXTRACT [Concomitant]
     Dosage: 80 MG, 2X/DAY
     Route: 048

REACTIONS (4)
  - DRUG INEFFECTIVE [None]
  - EYE DISCHARGE [None]
  - INTRAOCULAR PRESSURE INCREASED [None]
  - OCULAR DISCOMFORT [None]
